FAERS Safety Report 6247778-2 (Version None)
Quarter: 2009Q2

REPORT INFORMATION
  Report Type: 
  Country: None (occurrence: None)
  Receive Date: 20090626
  Receipt Date: 20081202
  Transmission Date: 20091009
  Serious: No
  Sender: FDA-Public Use
  Company Number: US-TYCO HEALTHCARE/MALLINCKRODT-T200802044

PATIENT

DRUGS (4)
  1. TECHNESCAN MAG3 [Suspect]
     Indication: RENAL SCAN
     Dosage: UNK, SINGLE
     Route: 042
     Dates: start: 20081201, end: 20081201
  2. TECHNESCAN MAG3 [Suspect]
     Dosage: UNK, SINGLE
     Route: 042
     Dates: start: 20081202, end: 20081202
  3. ULTRA-TECHNEKOW [Concomitant]
     Indication: RENAL SCAN
     Dosage: 11 MCI, SINGLE
     Route: 042
     Dates: start: 20081201, end: 20081201
  4. ULTRA-TECHNEKOW [Concomitant]
     Dosage: 11 MCI, SINGLE
     Route: 042
     Dates: start: 20081202, end: 20081202

REACTIONS (1)
  - DRUG INEFFECTIVE [None]
